FAERS Safety Report 17972275 (Version 1)
Quarter: 2020Q3

REPORT INFORMATION
  Report Type: Spontaneous
  Country: GB (occurrence: GB)
  Receive Date: 20200702
  Receipt Date: 20200702
  Transmission Date: 20201103
  Serious: Yes (Other)
  Sender: FDA-Public Use
  Company Number: GB-BRISTOL-MYERS SQUIBB COMPANY-BMS-2018-092188

PATIENT
  Sex: Male

DRUGS (1)
  1. OPDIVO [Suspect]
     Active Substance: NIVOLUMAB
     Indication: OESOPHAGEAL CARCINOMA
     Dosage: UNAV
     Route: 065

REACTIONS (6)
  - Hallucination [Unknown]
  - Intentional product use issue [Unknown]
  - Fatigue [Unknown]
  - Pruritus [Unknown]
  - Rash [Unknown]
  - Metastases to central nervous system [Unknown]
